FAERS Safety Report 24791492 (Version 1)
Quarter: 2024Q4

REPORT INFORMATION
  Report Type: Spontaneous
  Country: CA (occurrence: CA)
  Receive Date: 20241231
  Receipt Date: 20241231
  Transmission Date: 20250114
  Serious: Yes (Other)
  Sender: CELLTRION
  Company Number: CA-PFIZER INC-202300254744

PATIENT

DRUGS (16)
  1. INFLECTRA [Suspect]
     Active Substance: INFLIXIMAB-DYYB
     Indication: Crohn^s disease
     Dosage: 5 MG/KG, 0,2,6, THEN EVERY 8 WEEKS
     Route: 042
     Dates: start: 20230705
  2. INFLECTRA [Suspect]
     Active Substance: INFLIXIMAB-DYYB
     Dosage: 5 MG/KG, 0,2,6, THEN EVERY 8 WEEKS (565 MG, AFTER 2 WEEKS)
     Route: 042
     Dates: start: 20230718
  3. INFLECTRA [Suspect]
     Active Substance: INFLIXIMAB-DYYB
     Dosage: 5 MG/KG, 0,2,6, THEN EVERY 8 WEEKS (545 MG, AFTER 4 WEEKS)
     Route: 042
     Dates: start: 20230815
  4. INFLECTRA [Suspect]
     Active Substance: INFLIXIMAB-DYYB
     Dosage: 7.5 MG/KG, (1 DF) EVERY 8 WEEKS
     Route: 042
     Dates: start: 20240326, end: 20240326
  5. INFLECTRA [Suspect]
     Active Substance: INFLIXIMAB-DYYB
     Dosage: 10 MG/KG, 1 DOSE AFTER 7 WEEKS THEN EVERY 8
     Route: 042
     Dates: start: 20240515, end: 20240515
  6. INFLECTRA [Suspect]
     Active Substance: INFLIXIMAB-DYYB
     Dosage: 10 MG/KG (830 MG), TOOK AFTER 7 WEEKS AND 6 DAYS (PRESCRIBED EVERY 6 WEEKS)
     Route: 042
     Dates: start: 20240709, end: 20240709
  7. INFLECTRA [Suspect]
     Active Substance: INFLIXIMAB-DYYB
     Dosage: 10 MG/KG EVERY 5 WEEKS
     Route: 042
     Dates: start: 20240819
  8. INFLECTRA [Suspect]
     Active Substance: INFLIXIMAB-DYYB
     Dosage: 10 MG/KG (790 MG) EVERY 5 WEEKS
     Route: 042
     Dates: start: 20240923
  9. INFLECTRA [Suspect]
     Active Substance: INFLIXIMAB-DYYB
     Dosage: 770 MG, 5 WEEKS
     Route: 042
     Dates: start: 20241028
  10. INFLECTRA [Suspect]
     Active Substance: INFLIXIMAB-DYYB
     Dosage: 790 MG AFTER 5 WEEKS
     Route: 042
     Dates: start: 20241202, end: 20241202
  11. DEXILANT [Concomitant]
     Active Substance: DEXLANSOPRAZOLE
     Dosage: 1 DF
  12. GLYBURIDE [Concomitant]
     Active Substance: GLYBURIDE
     Dosage: 5 MG
  13. IRON [Concomitant]
     Active Substance: IRON
     Dosage: 1 DF
  14. JARDIANCE [Concomitant]
     Active Substance: EMPAGLIFLOZIN
     Dosage: 10 MG
  15. METFORMIN [Concomitant]
     Active Substance: METFORMIN HYDROCHLORIDE
     Dosage: 1000 MG
  16. MESALAMINE [Concomitant]
     Active Substance: MESALAMINE
     Dosage: 1 DF

REACTIONS (8)
  - Immune-mediated adverse reaction [Unknown]
  - Drug ineffective [Unknown]
  - Therapeutic response shortened [Unknown]
  - Condition aggravated [Not Recovered/Not Resolved]
  - Arthralgia [Recovered/Resolved]
  - Nasopharyngitis [Unknown]
  - Malaise [Unknown]
  - Off label use [Unknown]

NARRATIVE: CASE EVENT DATE: 20230718
